FAERS Safety Report 6772374-8 (Version None)
Quarter: 2010Q2

REPORT INFORMATION
  Report Type: 
  Country: None (occurrence: None)
  Receive Date: 20100616
  Receipt Date: 20091117
  Transmission Date: 20101027
  Serious: Yes (Other)
  Sender: FDA-Public Use
  Company Number: US-ASTRAZENECA-2009SE26925

PATIENT
  Age: 823 Month
  Sex: Female

DRUGS (3)
  1. PULMICORT RESPULES [Suspect]
     Route: 055
     Dates: start: 20050701
  2. SPIRIVA [Concomitant]
  3. COMPUVENT [Concomitant]

REACTIONS (2)
  - CATARACT [None]
  - GLAUCOMA [None]
